FAERS Safety Report 5159374-9 (Version None)
Quarter: 2006Q4

REPORT INFORMATION
  Report Type: 
  Country: None (occurrence: None)
  Receive Date: 20061120
  Receipt Date: 20061106
  Transmission Date: 20070319
  Serious: No
  Sender: FDA-Public Use
  Company Number: US018796

PATIENT
  Age: 24 Month
  Sex: Male

DRUGS (1)
  1. ACTIQ [Suspect]
     Dosage: 800 UG ONCE BUCCAL
     Route: 002

REACTIONS (1)
  - ACCIDENTAL DRUG INTAKE BY CHILD [None]
